FAERS Safety Report 8943701 (Version 2)
Quarter: 2013Q3

REPORT INFORMATION
  Report Type: Report from Study
  Country: FR (occurrence: FR)
  Receive Date: 20121204
  Receipt Date: 20130925
  Transmission Date: 20140515
  Serious: Yes (Death, Hospitalization)
  Sender: FDA-Public Use
  Company Number: PHHY2012FR110190

PATIENT
  Age: 81 Year
  Sex: Female

DRUGS (7)
  1. ACLASTA/ZOLEDRONATE [Suspect]
     Indication: OSTEOPOROSIS
     Dosage: 5 MG
     Route: 042
     Dates: start: 201205
  2. AMIODARONE [Concomitant]
     Dosage: UNK UKN, UNK
     Dates: start: 2009
  3. ATENOLOL [Concomitant]
     Dosage: UNK UKN, UNK
     Dates: start: 2009
  4. PREVISCAN [Concomitant]
     Dosage: UNK UKN, UNK
     Dates: start: 2009
  5. LEVOTHYROX [Concomitant]
     Dosage: UNK UKN, UNK
     Dates: start: 2000
  6. NISISCO [Concomitant]
     Dosage: UNK UKN, UNK
     Dates: start: 1990
  7. FER-200 [Concomitant]
     Dosage: UNK UKN, UNK
     Dates: start: 2012

REACTIONS (2)
  - Death [Fatal]
  - Pallor [Unknown]
